FAERS Safety Report 4839208-X (Version None)
Quarter: 2005Q4

REPORT INFORMATION
  Report Type: 
  Country: None (occurrence: None)
  Receive Date: 20051031
  Receipt Date: 20050929
  Transmission Date: 20060501
  Serious: No
  Sender: FDA-Public Use
  Company Number: 200516957US

PATIENT
  Age: 33 Year
  Sex: Female
  Weight: 109 kg

DRUGS (5)
  1. KETEK [Suspect]
     Indication: SINUSITIS
     Dosage: 800 MG QD PO
     Route: 048
     Dates: start: 20050914, end: 20050918
  2. VITAMINS [Concomitant]
  3. ALBUTEROL [Concomitant]
  4. MEDROL [Concomitant]
  5. DECONGESTANT NOS [Concomitant]

REACTIONS (6)
  - ABDOMINAL PAIN [None]
  - FLUSHING [None]
  - HYPERSENSITIVITY [None]
  - PARAESTHESIA [None]
  - RASH GENERALISED [None]
  - SWELLING FACE [None]
